FAERS Safety Report 9811087 (Version 1)
Quarter: 2014Q1

REPORT INFORMATION
  Report Type: Spontaneous
  Country: DE (occurrence: DE)
  Receive Date: 20140110
  Receipt Date: 20140110
  Transmission Date: 20141002
  Serious: Yes (Other)
  Sender: FDA-Public Use
  Company Number: GXKR2014DE000496

PATIENT
  Age: 89 Year
  Sex: Female

DRUGS (1)
  1. AMLODIPIN HEXAL [Suspect]
     Indication: HYPERTENSION
     Dosage: 5 MG, QD
     Route: 048

REACTIONS (2)
  - Glaucoma [Unknown]
  - Alopecia [Unknown]
